FAERS Safety Report 16248083 (Version 10)
Quarter: 2019Q3

REPORT INFORMATION
  Report Type: Report from Study
  Country: MX (occurrence: MX)
  Receive Date: 20190428
  Receipt Date: 20190917
  Transmission Date: 20191004
  Serious: Yes (Other)
  Sender: FDA-Public Use
  Company Number: PHHY2019MX085753

PATIENT
  Age: 81 Year
  Sex: Female
  Weight: 60 kg

DRUGS (19)
  1. ENTRESTO [Suspect]
     Active Substance: SACUBITRIL\VALSARTAN
     Indication: CARDIAC DISORDER
     Dosage: 1 DF (24 MG OF SACUBITRIL AND 26 MG OF VALSARTAN), QD (EVERY 24 HOURS)
     Route: 048
  2. DIGOXINE [Concomitant]
     Active Substance: DIGOXIN
     Dosage: 0.25 MG, EVERY THIRD DAY
     Dates: start: 2014
  3. METFORMIN [Concomitant]
     Active Substance: METFORMIN HYDROCHLORIDE
     Indication: DIABETES MELLITUS
     Dosage: 250 MG, QD
     Route: 048
     Dates: start: 1999
  4. ASPIRIN FORTE [Concomitant]
     Indication: ANTICOAGULANT THERAPY
     Dosage: 1 DF, QD
     Route: 048
  5. HUMYLUB OFTENO [Concomitant]
     Indication: EYE LUBRICATION THERAPY
     Dosage: 1 DF, Q4H
     Route: 047
  6. TRAVOPROST. [Concomitant]
     Active Substance: TRAVOPROST
     Indication: GLAUCOMA
     Dosage: 1 DF, Q24H
     Route: 047
  7. FUROSEMIDE. [Concomitant]
     Active Substance: FUROSEMIDE
     Indication: FLUID RETENTION
     Dosage: 0.5 DF, QD
     Route: 048
     Dates: start: 2014
  8. INSULIN [Concomitant]
     Active Substance: INSULIN NOS
     Indication: DIABETES MELLITUS
     Dosage: 24 IU, QD (IN CASE IT IS NECESSARY)
     Route: 058
     Dates: start: 2014
  9. DULOXETINE. [Concomitant]
     Active Substance: DULOXETINE
     Indication: DEPRESSION
     Dosage: 1 DF, QD
     Route: 048
  10. ENTRESTO [Suspect]
     Active Substance: SACUBITRIL\VALSARTAN
     Indication: CARDIAC FAILURE
     Dosage: 1 DF (24 MG OF SACUBITRIL AND 26 MG OF VALSARTAN), QD (EVERY 24 HOURS)
     Route: 048
     Dates: start: 201805
  11. DIGOXINE [Concomitant]
     Active Substance: DIGOXIN
     Indication: CARDIAC DYSFUNCTION
     Dosage: 0.25 MG, QW3
     Route: 048
     Dates: start: 2014
  12. ATORVASTATINE [Concomitant]
     Active Substance: ATORVASTATIN
     Indication: CARDIAC DISORDER
     Dosage: 1 DF, QD
     Route: 048
     Dates: start: 2014
  13. ATORVASTATINE [Concomitant]
     Active Substance: ATORVASTATIN
     Dosage: 1 DF, EVERY THIRD DAY
     Route: 048
     Dates: start: 2014
  14. SERTRALINE [Concomitant]
     Active Substance: SERTRALINE HYDROCHLORIDE
     Indication: DEPRESSION
     Dosage: 1 DF, QD
     Route: 048
  15. CLONAZEPAM. [Concomitant]
     Active Substance: CLONAZEPAM
     Indication: SLEEP DISORDER
     Dosage: 1 DF, QD
     Route: 048
  16. DORZOLAMIDE [Concomitant]
     Active Substance: DORZOLAMIDE
     Indication: GLAUCOMA
     Dosage: 1 DF, (EVERY 24 IN EACH CYCLE)
     Route: 047
  17. FUROSEMIDE. [Concomitant]
     Active Substance: FUROSEMIDE
     Indication: DIURETIC THERAPY
     Dosage: 0.25 DF, QD
     Route: 048
     Dates: start: 2014
  18. METFORMIN [Concomitant]
     Active Substance: METFORMIN HYDROCHLORIDE
     Dosage: 850 MG, QD
     Route: 048
     Dates: start: 1999
  19. SPIRONOLACTONE. [Concomitant]
     Active Substance: SPIRONOLACTONE
     Indication: DEPRESSION
     Dosage: 0.5 DF, QD
     Route: 048
     Dates: start: 2014

REACTIONS (35)
  - Feeling abnormal [Recovering/Resolving]
  - Fatigue [Unknown]
  - Depression [Not Recovered/Not Resolved]
  - Photophobia [Unknown]
  - Headache [Unknown]
  - Respiratory failure [Unknown]
  - Eye disorder [Unknown]
  - Decreased activity [Unknown]
  - Weight increased [Unknown]
  - Neck pain [Unknown]
  - Musculoskeletal pain [Unknown]
  - Hypotension [Not Recovered/Not Resolved]
  - Angiopathy [Unknown]
  - Blood glucose increased [Unknown]
  - Dyspnoea [Not Recovered/Not Resolved]
  - Tremor [Unknown]
  - Hypersensitivity [Unknown]
  - Malaise [Not Recovered/Not Resolved]
  - Insomnia [Unknown]
  - Nasal inflammation [Unknown]
  - Cardiac failure [Recovering/Resolving]
  - Somnolence [Unknown]
  - Pain [Not Recovered/Not Resolved]
  - Dysstasia [Recovering/Resolving]
  - Tooth disorder [Unknown]
  - Speech disorder [Unknown]
  - Discomfort [Not Recovered/Not Resolved]
  - Mastication disorder [Unknown]
  - Drug intolerance [Unknown]
  - Inappropriate schedule of product administration [Unknown]
  - Anxiety [Not Recovered/Not Resolved]
  - Poor quality sleep [Not Recovered/Not Resolved]
  - Eye pain [Unknown]
  - Nasal discomfort [Unknown]
  - Prescribed underdose [Unknown]

NARRATIVE: CASE EVENT DATE: 20190404
